FAERS Safety Report 20596274 (Version 2)
Quarter: 2022Q1

REPORT INFORMATION
  Report Type: Spontaneous
  Country: US (occurrence: None)
  Receive Date: 20220315
  Receipt Date: 20220317
  Transmission Date: 20220423
  Serious: No
  Sender: FDA-Public Use
  Company Number: US-ROCHE-2748166

PATIENT
  Sex: Female

DRUGS (11)
  1. XOLAIR [Suspect]
     Active Substance: OMALIZUMAB
     Indication: Idiopathic urticaria
     Dosage: XOLAIR SD PFS 150 MG/ML
     Route: 058
     Dates: start: 20201203
  2. XOLAIR [Suspect]
     Active Substance: OMALIZUMAB
  3. XOLAIR [Suspect]
     Active Substance: OMALIZUMAB
  4. XOLAIR [Suspect]
     Active Substance: OMALIZUMAB
     Indication: Psoriatic arthropathy
  5. XOLAIR [Suspect]
     Active Substance: OMALIZUMAB
  6. XOLAIR [Suspect]
     Active Substance: OMALIZUMAB
  7. XOLAIR [Suspect]
     Active Substance: OMALIZUMAB
     Indication: Urticaria
  8. XOLAIR [Suspect]
     Active Substance: OMALIZUMAB
  9. XOLAIR [Suspect]
     Active Substance: OMALIZUMAB
  10. ZYRTEC [Suspect]
     Active Substance: CETIRIZINE HYDROCHLORIDE
     Indication: Product used for unknown indication
     Dosage: 4 TABLET
     Route: 065
  11. AMLODIPINE [Suspect]
     Active Substance: AMLODIPINE BESYLATE
     Indication: Product used for unknown indication
     Route: 065

REACTIONS (3)
  - Heart rate increased [Recovered/Resolved]
  - Palpitations [Recovered/Resolved]
  - Overdose [Unknown]
